FAERS Safety Report 4535392-6 (Version None)
Quarter: 2004Q4

REPORT INFORMATION
  Report Type: 
  Country: None (occurrence: None)
  Receive Date: 20041214
  Receipt Date: 20040804
  Transmission Date: 20050328
  Serious: No
  Sender: FDA-Public Use
  Company Number: USA040874525

PATIENT
  Sex: Male

DRUGS (7)
  1. CIALIS [Suspect]
     Dosage: 20 MG
     Dates: start: 20040802
  2. HUMALOG [Suspect]
  3. ACCUPRIL [Concomitant]
  4. ZETIA [Concomitant]
  5. METFORMIN HCL [Concomitant]
  6. HYDROCHLOROTHIAZIDE [Concomitant]
  7. MULTIVITAMIN [Concomitant]

REACTIONS (1)
  - FAECES DISCOLOURED [None]
